FAERS Safety Report 22345774 (Version 4)
Quarter: 2023Q4

REPORT INFORMATION
  Report Type: Report from Study
  Country: US (occurrence: US)
  Receive Date: 20230519
  Receipt Date: 20231222
  Transmission Date: 20240110
  Serious: Yes (Other)
  Sender: FDA-Public Use
  Company Number: US-ABBVIE-4771090

PATIENT
  Age: 51 Year
  Sex: Female
  Weight: 57 kg

DRUGS (7)
  1. SKYRIZI [Suspect]
     Active Substance: RISANKIZUMAB-RZAA
     Indication: Psoriasis
     Dosage: FORM STRENGTH: 150 MILLIGRAM
     Route: 058
     Dates: start: 20221111, end: 20221111
  2. SKYRIZI [Suspect]
     Active Substance: RISANKIZUMAB-RZAA
     Dosage: FORM STRENGTH: 150 MILLIGRAM
     Route: 058
     Dates: start: 20221212, end: 20221212
  3. SKYRIZI [Suspect]
     Active Substance: RISANKIZUMAB-RZAA
     Dosage: FORM STRENGTH: 150 MILLIGRAM
     Dates: start: 202303
  4. LIDOCAINE [Concomitant]
     Active Substance: LIDOCAINE
     Indication: Anaesthesia procedure
     Route: 065
  5. EPINEPHRINE [Concomitant]
     Active Substance: EPINEPHRINE
     Indication: Anaesthesia procedure
     Route: 065
  6. BREO ELLIPTA [Concomitant]
     Active Substance: FLUTICASONE FUROATE\VILANTEROL TRIFENATATE
     Indication: Product used for unknown indication
     Dosage: 100-25 MCG PER DOSE
  7. Hydrochlorothiazide sar [Concomitant]
     Indication: Product used for unknown indication
     Route: 048

REACTIONS (14)
  - Squamous cell carcinoma [Recovered/Resolved]
  - Skin ulcer [Recovered/Resolved]
  - Basal cell carcinoma [Recovering/Resolving]
  - Bowen^s disease [Unknown]
  - Actinic keratosis [Unknown]
  - Lichenoid keratosis [Unknown]
  - Melanocytic naevus [Unknown]
  - Lentigo [Unknown]
  - Solar lentigo [Unknown]
  - Skin papilloma [Unknown]
  - Seborrhoeic keratosis [Unknown]
  - Urticaria [Unknown]
  - Eczema [Unknown]
  - Neoplasm [Unknown]

NARRATIVE: CASE EVENT DATE: 19951122
